FAERS Safety Report 16907684 (Version 1)
Quarter: 2019Q4

REPORT INFORMATION
  Report Type: Spontaneous
  Country: US (occurrence: US)
  Receive Date: 20191011
  Receipt Date: 20191011
  Transmission Date: 20200122
  Serious: No
  Sender: FDA-Public Use
  Company Number: US-CIPLA LTD.-2019US01298

PATIENT

DRUGS (7)
  1. CALTRATE                           /00944201/ [Concomitant]
     Active Substance: CALCIUM CARBONATE\CHOLECALCIFEROL
     Indication: OSTEOPOROSIS
     Dosage: UNK, 2 TABLETS, PER DAY, BY MOUTH
     Route: 048
  2. ESCITALOPRAM [Suspect]
     Active Substance: ESCITALOPRAM OXALATE
     Indication: NERVOUSNESS
     Dosage: 20 MILLIGRAM, QD, IN THE EVENING
     Route: 048
  3. COSOPT [Concomitant]
     Active Substance: DORZOLAMIDE HYDROCHLORIDE\TIMOLOL MALEATE
     Indication: OCULAR HYPERTENSION
     Dosage: UNK, BID, 1 DROP IN EACH EYE MORNING AND EVENING (OPTIC SKIN SOLN)
  4. FLORASTOR                          /00079701/ [Concomitant]
     Indication: IRRITABLE BOWEL SYNDROME
     Dosage: UNK, BID, 1 CAPSULE WITH BREAKFAST AND 1 CAPSULE WITH DINNER
     Route: 065
  5. TRAVATAN [Concomitant]
     Active Substance: TRAVOPROST
     Indication: OCULAR HYPERTENSION
     Dosage: 1 DROP IN EACH EYE EVERY EVENING BEFORE BED, QD, OPTIC SOLUTION
  6. ESCITALOPRAM [Suspect]
     Active Substance: ESCITALOPRAM OXALATE
     Indication: ANXIETY
     Dosage: 10 MILLIGRAM, UNK
     Route: 048
  7. METOPROLOL SUCCINATE. [Concomitant]
     Active Substance: METOPROLOL SUCCINATE
     Indication: HYPERTENSION
     Dosage: 25 MILLIGRAM (ER), QD, ONCE A DAY AT DINNER TIME BY MOUTH
     Route: 048

REACTIONS (1)
  - Drug ineffective [Unknown]
